FAERS Safety Report 14707359 (Version 1)
Quarter: 2018Q2

REPORT INFORMATION
  Report Type: Spontaneous
  Country: FR (occurrence: FR)
  Receive Date: 20180403
  Receipt Date: 20180403
  Transmission Date: 20180711
  Serious: Yes (Hospitalization, Other)
  Sender: FDA-Public Use
  Company Number: FR-IROKO PHARMACEUTICALS LLC-FR-I09001-18-00035

PATIENT
  Age: 59 Year
  Sex: Female

DRUGS (4)
  1. INDOCIN [Interacting]
     Active Substance: INDOMETHACIN
     Indication: INFLAMMATION
     Route: 048
     Dates: start: 2004, end: 20180306
  2. INDOCIN [Suspect]
     Active Substance: INDOMETHACIN
     Indication: INFLAMMATION
     Route: 048
     Dates: start: 2004, end: 20180306
  3. IMETH [Interacting]
     Active Substance: METHOTREXATE SODIUM
     Indication: PSORIATIC ARTHROPATHY
     Route: 048
     Dates: start: 2004, end: 20180306
  4. OMEPRAZOLE. [Interacting]
     Active Substance: OMEPRAZOLE
     Indication: GASTROINTESTINAL DISORDER THERAPY
     Route: 048
     Dates: end: 201803

REACTIONS (2)
  - Drug interaction [Unknown]
  - Pancytopenia [Not Recovered/Not Resolved]

NARRATIVE: CASE EVENT DATE: 20180305
